FAERS Safety Report 14573445 (Version 1)
Quarter: 2018Q1

REPORT INFORMATION
  Report Type: Spontaneous
  Country: US (occurrence: US)
  Receive Date: 20180223
  Receipt Date: 20180223
  Transmission Date: 20180509
  Serious: Yes (Hospitalization)
  Sender: FDA-Public Use
  Company Number: None

PATIENT
  Age: 73 Year
  Sex: Female
  Weight: 65.5 kg

DRUGS (11)
  1. APIXABAN [Suspect]
     Active Substance: APIXABAN
     Indication: DEEP VEIN THROMBOSIS
     Route: 048
     Dates: start: 20171115
  2. DEXAMETHASONE. [Concomitant]
     Active Substance: DEXAMETHASONE
  3. MULTIVITAMIN [Concomitant]
     Active Substance: VITAMINS
  4. PREVIDENT [Concomitant]
     Active Substance: SODIUM FLUORIDE
  5. METOPROLOL TARTRATE. [Concomitant]
     Active Substance: METOPROLOL TARTRATE
  6. EVEROLIMUS. [Concomitant]
     Active Substance: EVEROLIMUS
  7. TRIAMTEREN-HYDROCHLOROTHIAZIDE [Concomitant]
  8. VITAMIN D3 [Concomitant]
     Active Substance: CHOLECALCIFEROL
  9. ACETAMINOPHEN. [Concomitant]
     Active Substance: ACETAMINOPHEN
  10. EXEMESTANE. [Concomitant]
     Active Substance: EXEMESTANE
  11. CALCIUM CARBONATED [Concomitant]

REACTIONS (2)
  - Back pain [None]
  - Urinary tract infection [None]

NARRATIVE: CASE EVENT DATE: 20180220
